FAERS Safety Report 7763030-8 (Version None)
Quarter: 2011Q3

REPORT INFORMATION
  Report Type: 
  Country: None (occurrence: None)
  Receive Date: 20110920
  Receipt Date: 20110916
  Transmission Date: 20111222
  Serious: Yes (Other)
  Sender: FDA-Public Use
  Company Number: US-TEVA-301110USA

PATIENT
  Sex: Female

DRUGS (2)
  1. ETANERCEPT [Concomitant]
  2. COPAXONE [Suspect]
     Indication: MULTIPLE SCLEROSIS
     Route: 058
     Dates: start: 20080905

REACTIONS (1)
  - TYPE 2 DIABETES MELLITUS [None]
